FAERS Safety Report 10167990 (Version 1)
Quarter: 2014Q2

REPORT INFORMATION
  Report Type: Spontaneous
  Country: KZ (occurrence: KZ)
  Receive Date: 20140512
  Receipt Date: 20140512
  Transmission Date: 20141212
  Serious: Yes (Hospitalization)
  Sender: FDA-Public Use
  Company Number: KZ-VIIV HEALTHCARE LIMITED-B0992270A

PATIENT
  Age: 29 Year
  Sex: Male

DRUGS (1)
  1. TRIZIVIR [Suspect]
     Indication: HIV INFECTION
     Dosage: 1TAB TWICE PER DAY
     Route: 065
     Dates: start: 20140321, end: 20140327

REACTIONS (3)
  - Psoriasis [Recovered/Resolved]
  - Body temperature increased [Not Recovered/Not Resolved]
  - Cough [Recovered/Resolved]
